FAERS Safety Report 6166657-2 (Version None)
Quarter: 2009Q2

REPORT INFORMATION
  Report Type: 
  Country: None (occurrence: None)
  Receive Date: 20090424
  Receipt Date: 20090414
  Transmission Date: 20091009
  Serious: Yes (Other)
  Sender: FDA-Public Use
  Company Number: US-ELI_LILLY_AND_COMPANY-US200904004037

PATIENT
  Age: 10 Year
  Sex: Male

DRUGS (2)
  1. STRATTERA [Suspect]
     Dosage: 60 MG, UNKNOWN
     Route: 065
  2. ABILIFY [Concomitant]
     Dosage: 5 MG, UNKNOWN
     Route: 065

REACTIONS (2)
  - BLEEDING TIME PROLONGED [None]
  - PLATELET COUNT DECREASED [None]
